FAERS Safety Report 9670289 (Version 1)
Quarter: 2013Q4

REPORT INFORMATION
  Report Type: Report from Study
  Country: US (occurrence: US)
  Receive Date: 20131105
  Receipt Date: 20131105
  Transmission Date: 20140711
  Serious: Yes (Other)
  Sender: FDA-Public Use
  Company Number: US-BAXTER-2013BAX043413

PATIENT
  Sex: Male

DRUGS (3)
  1. GAMMAGARD S/D [Suspect]
     Indication: IMMUNE SYSTEM DISORDER
     Route: 042
  2. VERSED [Suspect]
     Indication: PRODUCT USED FOR UNKNOWN INDICATION
     Dosage: DOUBLE THE NORMAL DOSE
  3. GAMUNEX C [Concomitant]
     Indication: IMMUNE SYSTEM DISORDER
     Route: 042

REACTIONS (4)
  - Aggression [Unknown]
  - Malaise [Not Recovered/Not Resolved]
  - Agitation [Unknown]
  - Anger [Unknown]
